FAERS Safety Report 9880515 (Version 2)
Quarter: 2014Q1

REPORT INFORMATION
  Report Type: Report from Study
  Country: FR (occurrence: FR)
  Receive Date: 20140207
  Receipt Date: 20140207
  Transmission Date: 20141002
  Serious: Yes (Hospitalization)
  Sender: FDA-Public Use
  Company Number: FR-ROCHE-1142440

PATIENT
  Age: 48 Year
  Sex: Male

DRUGS (12)
  1. BEVACIZUMAB [Suspect]
     Indication: COLORECTAL CANCER METASTATIC
     Route: 042
     Dates: start: 20101026, end: 201104
  2. 5-FLUOROURACIL [Suspect]
     Indication: COLORECTAL CANCER METASTATIC
     Dosage: BOLUS
     Route: 065
     Dates: start: 20110405
  3. 5-FLUOROURACIL [Suspect]
     Dosage: CONTINUOUS
     Route: 065
     Dates: start: 20110405
  4. 5-FLUOROURACIL [Suspect]
     Route: 042
     Dates: start: 200911, end: 201004
  5. 5-FLUOROURACIL [Suspect]
     Route: 042
     Dates: start: 20101026, end: 201104
  6. IRINOTECAN [Suspect]
     Indication: COLORECTAL CANCER METASTATIC
     Route: 065
     Dates: start: 20110405
  7. IRINOTECAN [Suspect]
     Route: 042
     Dates: start: 20101026, end: 201104
  8. FOLINIC ACID [Suspect]
     Indication: COLORECTAL CANCER METASTATIC
     Route: 065
     Dates: start: 20110405
  9. FOLINIC ACID [Suspect]
     Route: 042
     Dates: start: 200911, end: 201004
  10. OXALIPLATIN [Suspect]
     Indication: COLORECTAL CANCER METASTATIC
     Route: 042
     Dates: start: 20091105, end: 20100412
  11. CALCIUM LEVOFOLINATE [Suspect]
     Indication: COLORECTAL CANCER METASTATIC
     Route: 042
     Dates: start: 20101026, end: 201104
  12. GRANOCYTE [Concomitant]
     Route: 065

REACTIONS (1)
  - Acute myeloid leukaemia [Unknown]
